FAERS Safety Report 15401285 (Version 3)
Quarter: 2018Q4

REPORT INFORMATION
  Report Type: Spontaneous
  Country: US (occurrence: US)
  Receive Date: 20180919
  Receipt Date: 20181203
  Transmission Date: 20190204
  Serious: No
  Sender: FDA-Public Use
  Company Number: US-SA-2018SA260810

PATIENT
  Age: 57 Year
  Sex: Male

DRUGS (1)
  1. DUPIXENT [Suspect]
     Active Substance: DUPILUMAB
     Dosage: UNK
     Dates: start: 20180413

REACTIONS (5)
  - Dry skin [Unknown]
  - Pruritus [Unknown]
  - Paraesthesia [Unknown]
  - Eye inflammation [Unknown]
  - Irritability [Unknown]

NARRATIVE: CASE EVENT DATE: 2018
